FAERS Safety Report 8300918-3 (Version None)
Quarter: 2012Q2

REPORT INFORMATION
  Report Type: 
  Country: None (occurrence: None)
  Receive Date: 20120420
  Receipt Date: 20120406
  Transmission Date: 20120825
  Serious: Yes (Hospitalization)
  Sender: FDA-Public Use
  Company Number: FR-CELGENEUS-056-21880-11112622

PATIENT
  Sex: Female
  Weight: 93.8 kg

DRUGS (1)
  1. REVLIMID [Suspect]
     Dosage: 10 MILLIGRAM
     Route: 048
     Dates: start: 20111104, end: 20111113

REACTIONS (4)
  - DECREASED APPETITE [None]
  - PROCTOCOLITIS [None]
  - DIARRHOEA [None]
  - PURPURA [None]
